FAERS Safety Report 5604176-X (Version None)
Quarter: 2008Q1

REPORT INFORMATION
  Report Type: 
  Country: None (occurrence: None)
  Receive Date: 20080123
  Receipt Date: 20080123
  Transmission Date: 20080703
  Serious: Yes (Other)
  Sender: FDA-Public Use
  Company Number: None

PATIENT
  Age: 55 Year
  Sex: Female
  Weight: 53.5244 kg

DRUGS (1)
  1. SERTRALINE [Suspect]
     Indication: DEPRESSION
     Dosage: ? ORAL
     Route: 048

REACTIONS (3)
  - ABDOMINAL PAIN UPPER [None]
  - PHARMACEUTICAL PRODUCT COMPLAINT [None]
  - POISONING [None]
